FAERS Safety Report 4840596-9 (Version None)
Quarter: 2005Q4

REPORT INFORMATION
  Report Type: 
  Country: None (occurrence: None)
  Receive Date: 20051129
  Receipt Date: 20051129
  Transmission Date: 20060501
  Serious: Yes (Other)
  Sender: FDA-Public Use
  Company Number: None

PATIENT
  Age: 69 Year
  Sex: Female
  Weight: 82.5547 kg

DRUGS (9)
  1. OXYCODONE ER ENDO PHARM 20 MG [Suspect]
     Indication: PAIN
     Dosage: 20 MG PO TID
     Route: 048
     Dates: start: 20051013
  2. OXYCODONE ER IVAX PHARM 20 MG [Suspect]
     Indication: PAIN
     Dosage: 20 MG PO TID
     Route: 048
     Dates: start: 20050928
  3. H/C APAP [Concomitant]
  4. GLYBURIDE [Concomitant]
  5. POTASSIUM CHLORIDE [Concomitant]
  6. DIAZEPAM [Concomitant]
  7. TOPROL-XL [Concomitant]
  8. LISINOPRIL [Concomitant]
  9. LASIX [Concomitant]

REACTIONS (3)
  - PRURITUS GENERALISED [None]
  - RASH [None]
  - THERAPEUTIC RESPONSE UNEXPECTED WITH DRUG SUBSTITUTION [None]
